FAERS Safety Report 17523486 (Version 3)
Quarter: 2020Q2

REPORT INFORMATION
  Report Type: Spontaneous
  Country: US (occurrence: US)
  Receive Date: 20200310
  Receipt Date: 20200522
  Transmission Date: 20200713
  Serious: No
  Sender: FDA-Public Use
  Company Number: US-PFIZER INC-2020103136

PATIENT
  Age: 54 Year
  Sex: Female
  Weight: 88.44 kg

DRUGS (4)
  1. DULOXETINE. [Concomitant]
     Active Substance: DULOXETINE
     Dosage: UNK
  2. LISINOPRIL. [Concomitant]
     Active Substance: LISINOPRIL
     Dosage: UNK
  3. BUPROPION HCL [Concomitant]
     Active Substance: BUPROPION HYDROCHLORIDE
     Dosage: UNK
  4. LYRICA [Suspect]
     Active Substance: PREGABALIN
     Indication: FIBROMYALGIA
     Dosage: 150 MG, TWICE A DAY
     Dates: start: 20200323

REACTIONS (8)
  - Diarrhoea [Unknown]
  - Hot flush [Unknown]
  - Agitation [Unknown]
  - Disturbance in attention [Unknown]
  - Anger [Unknown]
  - Restlessness [Unknown]
  - Withdrawal syndrome [Unknown]
  - Feeling of body temperature change [Unknown]
